FAERS Safety Report 9531643 (Version 3)
Quarter: 2014Q4

REPORT INFORMATION
  Report Type: Spontaneous
  Country: JP (occurrence: JP)
  Receive Date: 20130918
  Receipt Date: 20141024
  Transmission Date: 20150529
  Serious: Yes (Other)
  Sender: FDA-Public Use
  Company Number: JP-009507513-1309JPN006455

PATIENT
  Age: 32 Year
  Sex: Female

DRUGS (8)
  1. SEVOFLURANE. [Concomitant]
     Active Substance: SEVOFLURANE
     Indication: MAINTENANCE OF ANAESTHESIA
     Dosage: 2 %, DIVIDED DOSE FREQUENCY UNKNOWN
     Route: 055
     Dates: start: 2013
  2. PROPOFOL. [Concomitant]
     Active Substance: PROPOFOL
     Dosage: 2 UNK, UNK
     Route: 042
     Dates: start: 2013
  3. THIAMYLAL SODIUM [Suspect]
     Active Substance: THIAMYLAL SODIUM
     Indication: INDUCTION OF ANAESTHESIA
     Dosage: 250 MG, QD
     Route: 042
     Dates: start: 2013
  4. REMIFENTANIL HYDROCHLORIDE [Concomitant]
     Active Substance: REMIFENTANIL HYDROCHLORIDE
     Dosage: 0.3 MICROGRAM PER KILOGRAM, DIVIDED DOSE FREQUENCY UNKNOWN
     Route: 042
     Dates: start: 2013
  5. DIAZEPAM. [Concomitant]
     Active Substance: DIAZEPAM
     Dosage: 5 MG, DIVIDED DOSE FREQUENCY UNKNOWN
     Route: 065
     Dates: start: 2013
  6. BRIDION [Suspect]
     Active Substance: SUGAMMADEX
     Indication: NEUROMUSCULAR BLOCKADE REVERSAL
     Dosage: 200 MG, QD
     Route: 042
     Dates: start: 2013, end: 2013
  7. ESLAX [Suspect]
     Active Substance: ROCURONIUM BROMIDE
     Indication: NEUROMUSCULAR BLOCKING THERAPY
     Dosage: 60 MG, QD
     Route: 042
     Dates: start: 2013, end: 2013
  8. OXYGEN. [Concomitant]
     Active Substance: OXYGEN
     Indication: MAINTENANCE OF ANAESTHESIA

REACTIONS (3)
  - Clonic convulsion [Recovered/Resolved]
  - Maternal exposure during delivery [Recovered/Resolved]
  - Clonic convulsion [Unknown]

NARRATIVE: CASE EVENT DATE: 2013
